FAERS Safety Report 23111255 (Version 4)
Quarter: 2024Q1

REPORT INFORMATION
  Report Type: Report from Study
  Country: DE (occurrence: DE)
  Receive Date: 20231026
  Receipt Date: 20240329
  Transmission Date: 20240409
  Serious: Yes (Hospitalization)
  Sender: FDA-Public Use
  Company Number: DE-Merck Healthcare KGaA-2023468927

PATIENT
  Age: 75 Year
  Sex: Male

DRUGS (9)
  1. AVELUMAB [Suspect]
     Active Substance: AVELUMAB
     Indication: Transitional cell carcinoma
     Dates: start: 20230717
  2. AVELUMAB [Suspect]
     Active Substance: AVELUMAB
     Dates: start: 20230731
  3. GEMCITABINE [Suspect]
     Active Substance: GEMCITABINE
     Indication: Transitional cell carcinoma
     Dates: start: 20230112, end: 20230504
  4. CISPLATIN [Suspect]
     Active Substance: CISPLATIN
     Indication: Transitional cell carcinoma
     Dates: start: 20230112, end: 20230504
  5. ELIQUIS [Concomitant]
     Active Substance: APIXABAN
     Indication: Stent placement
     Route: 048
     Dates: start: 202212
  6. ASPIRIN [Concomitant]
     Active Substance: ASPIRIN
     Indication: Stent placement
     Route: 048
     Dates: start: 202212
  7. PANTOPRAZOLE [Concomitant]
     Active Substance: PANTOPRAZOLE
     Indication: Prophylaxis
     Route: 048
     Dates: start: 202212
  8. METAMIZOLE [Concomitant]
     Active Substance: METAMIZOLE
     Indication: Prophylaxis
     Route: 048
     Dates: start: 202306
  9. XIPAMIDE [Concomitant]
     Active Substance: XIPAMIDE
     Indication: Prophylaxis
     Route: 048
     Dates: start: 202303

REACTIONS (4)
  - Facial paralysis [Not Recovered/Not Resolved]
  - Peripheral artery aneurysm [Not Recovered/Not Resolved]
  - Polyneuropathy [Not Recovered/Not Resolved]
  - Dysarthria [Not Recovered/Not Resolved]

NARRATIVE: CASE EVENT DATE: 20230801
